FAERS Safety Report 6411346-X (Version None)
Quarter: 2009Q4

REPORT INFORMATION
  Report Type: 
  Country: None (occurrence: None)
  Receive Date: 20091023
  Receipt Date: 20091014
  Transmission Date: 20100525
  Serious: Yes (Other)
  Sender: FDA-Public Use
  Company Number: BR-PFIZER INC-2009283487

PATIENT
  Age: 34 Year

DRUGS (1)
  1. PROVERA [Suspect]
     Indication: HORMONE THERAPY
     Dosage: UNK
     Route: 048

REACTIONS (2)
  - ABORTION [None]
  - AFFECT LABILITY [None]
